FAERS Safety Report 6262021-6 (Version None)
Quarter: 2009Q3

REPORT INFORMATION
  Report Type: 
  Country: None (occurrence: None)
  Receive Date: 20090707
  Receipt Date: 20090707
  Transmission Date: 20100115
  Serious: Yes (Other)
  Sender: FDA-Public Use
  Company Number: None

PATIENT
  Age: 64 Year
  Sex: Female
  Weight: 55.3388 kg

DRUGS (1)
  1. ULTRAM [Suspect]
     Indication: OSTEOARTHRITIS
     Dosage: 1 TABLET OF 100 MG TOOK ONLY 1 PO
     Route: 048
     Dates: start: 20090702, end: 20090702

REACTIONS (9)
  - CHILLS [None]
  - DIZZINESS [None]
  - DRY MOUTH [None]
  - FLUSHING [None]
  - NAUSEA [None]
  - PRESYNCOPE [None]
  - SOMNOLENCE [None]
  - TREMOR [None]
  - VOMITING [None]
